FAERS Safety Report 21049725 (Version 1)
Quarter: 2022Q3

REPORT INFORMATION
  Report Type: Spontaneous
  Country: US (occurrence: US)
  Receive Date: 20220706
  Receipt Date: 20220706
  Transmission Date: 20221027
  Serious: No
  Sender: FDA-Public Use
  Company Number: US-Santen Inc-2022-USA-003616

PATIENT
  Sex: Male

DRUGS (1)
  1. VERKAZIA [Suspect]
     Active Substance: CYCLOSPORINE
     Indication: Product used for unknown indication
     Dosage: FOUR TIMES DAILY IN EACH EYE
     Route: 047
     Dates: start: 20220531

REACTIONS (2)
  - Eye irritation [Not Recovered/Not Resolved]
  - Nasal congestion [Not Recovered/Not Resolved]

NARRATIVE: CASE EVENT DATE: 20220602
